FAERS Safety Report 8972090 (Version 1)
Quarter: 2012Q4

REPORT INFORMATION
  Report Type: 
  Country: US (occurrence: PR)
  Receive Date: 20121218
  Receipt Date: 20121218
  Transmission Date: 20130627
  Serious: No
  Sender: FDA-Public Use
  Company Number: PR-B.I. PHARMACEUTICALS,INC./RIDGEFIELD-2012-BI-02392BP

PATIENT
  Sex: Male

DRUGS (3)
  1. JENTADUETO [Suspect]
     Indication: TYPE 2 DIABETES MELLITUS
     Route: 048
  2. AMARYL [Concomitant]
     Indication: DIABETES MELLITUS
     Dosage: 4 mg
  3. BENICAR [Concomitant]
     Indication: HYPERTENSION
     Dosage: 20 mg

REACTIONS (3)
  - Asthenia [Unknown]
  - Hypotension [Unknown]
  - Dizziness [Unknown]
